FAERS Safety Report 19777522 (Version 1)
Quarter: 2021Q3

REPORT INFORMATION
  Report Type: Spontaneous
  Country: US (occurrence: US)
  Receive Date: 20210831
  Receipt Date: 20210831
  Transmission Date: 20211014
  Serious: Yes (Hospitalization)
  Sender: FDA-Public Use
  Company Number: None

PATIENT
  Age: 81 Year
  Sex: Female

DRUGS (1)
  1. CAPECITABINE 500MG NOVADOZ PHARMACEUTICALS [Suspect]
     Active Substance: CAPECITABINE
     Indication: CERVIX CARCINOMA
     Route: 048
     Dates: start: 2021

REACTIONS (6)
  - Chapped lips [None]
  - Diarrhoea [None]
  - Vomiting [None]
  - Dehydration [None]
  - Therapy interrupted [None]
  - Dysstasia [None]

NARRATIVE: CASE EVENT DATE: 20210811
